FAERS Safety Report 9364171 (Version 1)
Quarter: 2013Q2

REPORT INFORMATION
  Report Type: Spontaneous
  Country: VE (occurrence: VE)
  Receive Date: 20130624
  Receipt Date: 20130624
  Transmission Date: 20140414
  Serious: Yes (Other)
  Sender: FDA-Public Use
  Company Number: VE-PFIZER INC-2013187146

PATIENT
  Age: 67 Year
  Sex: Female

DRUGS (1)
  1. LIPITOR [Suspect]
     Dosage: 10 MG, 1X/DAY

REACTIONS (2)
  - Fall [Unknown]
  - Conjunctival disorder [Unknown]
